FAERS Safety Report 10167926 (Version 2)
Quarter: 2020Q3

REPORT INFORMATION
  Report Type: Report from Study
  Country: GB (occurrence: GB)
  Receive Date: 20140512
  Receipt Date: 20140718
  Transmission Date: 20201105
  Serious: Yes (Hospitalization)
  Sender: FDA-Public Use
  Company Number: PHHY2014GB055731

PATIENT
  Age: 66 Year
  Sex: Male

DRUGS (17)
  1. 5?FLUOROURACIL [Suspect]
     Active Substance: FLUOROURACIL
     Dosage: 3900 MG, UNK
     Route: 042
     Dates: start: 20130725
  2. 5?FLUOROURACIL [Suspect]
     Active Substance: FLUOROURACIL
     Dosage: 750 MG, UNK
     Route: 040
     Dates: start: 20130725
  3. NYSTATIN. [Concomitant]
     Active Substance: NYSTATIN
     Indication: ORAL CANDIDIASIS
     Dosage: 1 ML, UNK
     Route: 048
     Dates: start: 201310
  4. DEXAMETHASONE. [Concomitant]
     Active Substance: DEXAMETHASONE
     Indication: NAUSEA
     Dosage: 8 MG, UNK
     Route: 048
     Dates: start: 20130627
  5. DIAZEPAM. [Concomitant]
     Active Substance: DIAZEPAM
     Dosage: 5 MG, UNK
     Route: 048
     Dates: start: 201310
  6. 5?FLUOROURACIL [Suspect]
     Active Substance: FLUOROURACIL
     Indication: GASTROOESOPHAGEAL CANCER
     Dosage: 3900 MG, UNK
     Route: 042
     Dates: start: 20130627
  7. CALCIUM FOLINATE [Suspect]
     Active Substance: LEUCOVORIN CALCIUM
     Dosage: 350 MG, UNK
     Route: 042
     Dates: start: 20130725
  8. ONARTUZUMAB. [Suspect]
     Active Substance: ONARTUZUMAB
     Indication: GASTROOESOPHAGEAL CANCER
     Route: 042
     Dates: start: 20130627
  9. 5?FLUOROURACIL [Suspect]
     Active Substance: FLUOROURACIL
     Dosage: 750 MG, UNK
     Route: 040
     Dates: start: 20130627
  10. METOCLOPRAMIDE. [Concomitant]
     Active Substance: METOCLOPRAMIDE
     Indication: NAUSEA
     Dosage: 10 MG, UNK
     Route: 048
     Dates: start: 201306
  11. CODEINE PHOSPHATE [Concomitant]
     Active Substance: CODEINE PHOSPHATE
     Indication: DIARRHOEA
     Dosage: 30 MG, UNK
     Route: 048
     Dates: start: 201306
  12. FLUCONAZOLE. [Concomitant]
     Active Substance: FLUCONAZOLE
     Dosage: 50 MG, UNK
     Route: 048
     Dates: start: 201310, end: 201310
  13. OXALIPLATIN. [Suspect]
     Active Substance: OXALIPLATIN
     Dosage: 160 MG, UNK
     Route: 042
     Dates: start: 20130725
  14. ONDANSETRON [Concomitant]
     Active Substance: ONDANSETRON
     Indication: NAUSEA
     Dosage: 8 MG, UNK
     Route: 048
     Dates: start: 20130627
  15. CALCIUM FOLINATE [Suspect]
     Active Substance: LEUCOVORIN CALCIUM
     Indication: GASTROOESOPHAGEAL CANCER
     Dosage: 350 MG, UNK
     Route: 042
     Dates: start: 20130627
  16. OXALIPLATIN. [Suspect]
     Active Substance: OXALIPLATIN
     Indication: GASTROOESOPHAGEAL CANCER
     Dosage: 160 MG, UNK
     Route: 042
     Dates: start: 20130627
  17. MEROPENEM. [Concomitant]
     Active Substance: MEROPENEM
     Dosage: 1 G, UNK
     Route: 042
     Dates: start: 20130808, end: 20130809

REACTIONS (3)
  - Febrile neutropenia [Recovering/Resolving]
  - Cellulitis [Unknown]
  - Body temperature increased [Unknown]

NARRATIVE: CASE EVENT DATE: 20130807
